FAERS Safety Report 4341387-8 (Version None)
Quarter: 2004Q2

REPORT INFORMATION
  Report Type: 
  Country: None (occurrence: None)
  Receive Date: 20040413
  Receipt Date: 20040402
  Transmission Date: 20050107
  Serious: Yes (Life-Threatening)
  Sender: FDA-Public Use
  Company Number: HQWYE337102APR04

PATIENT
  Age: 62 Year
  Sex: Male

DRUGS (8)
  1. CORDAREX (AMIODARONE, INJECTION) [Suspect]
     Dosage: SEE IMAGE
     Dates: start: 20040214, end: 20040214
  2. CORDAREX (AMIODARONE, INJECTION) [Suspect]
     Dosage: SEE IMAGE
     Dates: start: 20040215, end: 20040215
  3. CORDAREX (AMIODARONE, INJECTION) [Suspect]
     Dosage: SEE IMAGE
     Dates: start: 20040214, end: 20040221
  4. CORDAREX (AMIODARONE, INJECTION) [Suspect]
     Dosage: SEE IMAGE
     Dates: start: 20040222, end: 20040305
  5. EPINEPHRINE [Concomitant]
  6. HYDROCORTISONE [Concomitant]
  7. INSULIN [Concomitant]
  8. AMBROXOL (AMBROXOL) [Concomitant]

REACTIONS (16)
  - ACUTE MYOCARDIAL INFARCTION [None]
  - ASPARTATE AMINOTRANSFERASE INCREASED [None]
  - BLOOD ALKALINE PHOSPHATASE INCREASED [None]
  - BLOOD BICARBONATE INCREASED [None]
  - BLOOD CHOLINESTERASE DECREASED [None]
  - CARDIAC FAILURE [None]
  - GAMMA-GLUTAMYLTRANSFERASE INCREASED [None]
  - GLUTAMATE DEHYDROGENASE INCREASED [None]
  - HAEMOGLOBIN DECREASED [None]
  - HYPOTHERMIA [None]
  - LUNG INFILTRATION [None]
  - PCO2 INCREASED [None]
  - PNEUMONIA KLEBSIELLA [None]
  - PO2 INCREASED [None]
  - RESPIRATORY GAS EXCHANGE DISORDER [None]
  - WOUND DEHISCENCE [None]
